FAERS Safety Report 18274318 (Version 1)
Quarter: 2020Q3

REPORT INFORMATION
  Report Type: Spontaneous
  Country: GB (occurrence: GB)
  Receive Date: 20200916
  Receipt Date: 20200916
  Transmission Date: 20201103
  Serious: Yes (Disabling)
  Sender: FDA-Public Use
  Company Number: GB-PFIZER INC-2020352256

PATIENT
  Age: 54 Year
  Sex: Male

DRUGS (9)
  1. VORICONAZOLE. [Suspect]
     Active Substance: VORICONAZOLE
     Indication: MENINGITIS CRYPTOCOCCAL
     Dosage: 400 MG, 1X/DAY
     Route: 048
     Dates: start: 20200409, end: 20200423
  2. FLUCYTOSINE. [Concomitant]
     Active Substance: FLUCYTOSINE
     Dosage: 2.5G/250ML, BOTTLES
     Route: 042
     Dates: start: 20200410, end: 20200410
  3. VORICONAZOLE. [Suspect]
     Active Substance: VORICONAZOLE
     Dosage: 600 MG, 1X/DAY
     Route: 048
     Dates: start: 20200424, end: 20200510
  4. VORICONAZOLE. [Suspect]
     Active Substance: VORICONAZOLE
     Dosage: 900 MG, 1X/DAY
     Route: 048
     Dates: start: 20200624, end: 20200810
  5. VORICONAZOLE. [Suspect]
     Active Substance: VORICONAZOLE
     Dosage: 760 MG, 1X/DAY
     Route: 048
     Dates: start: 20200603, end: 20200623
  6. COLECALCIFEROL [Concomitant]
     Active Substance: CHOLECALCIFEROL
     Dosage: 800 IU, 1X/DAY
     Route: 048
  7. VORICONAZOLE. [Suspect]
     Active Substance: VORICONAZOLE
     Dosage: 700 MG, 1X/DAY
     Route: 048
     Dates: start: 20200511, end: 20200602
  8. AMBISOME [Concomitant]
     Active Substance: AMPHOTERICIN B
     Dosage: 350 MG, 1X/DAY
     Route: 042
     Dates: end: 20200415
  9. LEVETIRACETAM. [Concomitant]
     Active Substance: LEVETIRACETAM
     Dosage: 500 MG, 1X/DAY

REACTIONS (5)
  - Paraesthesia [Recovered/Resolved with Sequelae]
  - Erythema [Recovering/Resolving]
  - Hypoaesthesia [Recovered/Resolved]
  - Hypophosphataemia [Recovering/Resolving]
  - Photosensitivity reaction [Recovering/Resolving]

NARRATIVE: CASE EVENT DATE: 20200409
